FAERS Safety Report 6387649-4 (Version None)
Quarter: 2009Q4

REPORT INFORMATION
  Report Type: 
  Country: None (occurrence: None)
  Receive Date: 20091005
  Receipt Date: 20090928
  Transmission Date: 20100525
  Serious: No
  Sender: FDA-Public Use
  Company Number: US-B.I. PHARMACEUTICALS,INC./RIDGEFIELD-2009-BP-02478BP

PATIENT
  Sex: Female

DRUGS (14)
  1. SPIRIVA [Suspect]
     Indication: CHRONIC OBSTRUCTIVE PULMONARY DISEASE
     Dosage: 18 MCG
     Route: 055
     Dates: start: 20050101
  2. POTASSIUM CHLORIDE [Concomitant]
     Indication: PROPHYLAXIS
  3. POTASSIUM CHLORIDE [Concomitant]
     Indication: BLOOD POTASSIUM DECREASED
  4. ISOSORB [Concomitant]
     Indication: ANGINA PECTORIS
  5. SOTOLOL HCL [Concomitant]
     Indication: ATRIAL FIBRILLATION
  6. LORAZEPAM [Concomitant]
  7. CALCIUM [Concomitant]
     Dosage: 600 MG
  8. DILTIAZEM [Concomitant]
     Dosage: 240 MG
  9. RED YEAST RICE AND GARLE MAX GARLIC [Concomitant]
  10. ASPIRIN [Concomitant]
     Indication: ATRIAL FIBRILLATION
     Dosage: 325 MG
     Route: 048
     Dates: start: 20040101
  11. IBUPROFEN [Concomitant]
  12. MULTI-VITAMINS [Concomitant]
  13. PROAIR HFA [Concomitant]
     Indication: CHRONIC OBSTRUCTIVE PULMONARY DISEASE
     Dosage: 8 PUF
     Dates: start: 20090701
  14. VITAMIN B-12 [Concomitant]
     Indication: PROPHYLAXIS

REACTIONS (7)
  - AMNESIA [None]
  - BLOOD CHOLESTEROL INCREASED [None]
  - DEMENTIA ALZHEIMER'S TYPE [None]
  - DRUG INEFFECTIVE [None]
  - DYSPNOEA [None]
  - HEART RATE IRREGULAR [None]
  - OSTEOPOROSIS [None]
